FAERS Safety Report 4976923-1 (Version None)
Quarter: 2006Q2

REPORT INFORMATION
  Report Type: 
  Country: None (occurrence: None)
  Receive Date: 20060419
  Receipt Date: 20060130
  Transmission Date: 20061013
  Serious: Yes (Other)
  Sender: FDA-Public Use
  Company Number: PHBS2006CL01649

PATIENT
  Age: 88 Year
  Sex: Male

DRUGS (1)
  1. EXELON [Suspect]
     Dosage: 2 DF/DAY
     Route: 048
     Dates: start: 20030101

REACTIONS (1)
  - INGUINAL HERNIA REPAIR [None]
